FAERS Safety Report 8147396 (Version 8)
Quarter: 2012Q4

REPORT INFORMATION
  Report Type: 
  Country: US (occurrence: US)
  Receive Date: 20110922
  Receipt Date: 20121214
  Transmission Date: 20130627
  Serious: Yes (Hospitalization, Other)
  Sender: FDA-Public Use
  Company Number: US-ASTRAZENECA-2011SE04543

PATIENT
  Age: 47 Year
  Sex: Male
  Weight: 113.4 kg

DRUGS (45)
  1. SEROQUEL XR [Suspect]
     Indication: DEPRESSION
     Route: 048
     Dates: start: 2010, end: 201101
  2. SEROQUEL XR [Suspect]
     Indication: TACHYPHRENIA
     Route: 048
     Dates: start: 2010, end: 201101
  3. SEROQUEL XR [Suspect]
     Indication: ANXIETY
     Route: 048
     Dates: start: 2010, end: 201101
  4. SEROQUEL XR [Suspect]
     Indication: BIPOLAR DISORDER
     Route: 048
     Dates: start: 2010, end: 201101
  5. SEROQUEL XR [Suspect]
     Indication: SLEEP DISORDER
     Route: 048
     Dates: start: 2010, end: 201101
  6. SEROQUEL XR [Suspect]
     Indication: AFFECTIVE DISORDER
     Route: 048
     Dates: start: 2010, end: 201101
  7. SEROQUEL XR [Suspect]
     Indication: MAJOR DEPRESSION
     Route: 048
     Dates: start: 2010, end: 201101
  8. SEROQUEL XR [Suspect]
     Indication: DEPRESSION
     Route: 048
  9. SEROQUEL XR [Suspect]
     Indication: TACHYPHRENIA
     Route: 048
  10. SEROQUEL XR [Suspect]
     Indication: ANXIETY
     Route: 048
  11. SEROQUEL XR [Suspect]
     Indication: BIPOLAR DISORDER
     Route: 048
  12. SEROQUEL XR [Suspect]
     Indication: SLEEP DISORDER
     Route: 048
  13. SEROQUEL XR [Suspect]
     Indication: AFFECTIVE DISORDER
     Route: 048
  14. SEROQUEL XR [Suspect]
     Indication: MAJOR DEPRESSION
     Route: 048
  15. SEROQUEL XR [Suspect]
     Indication: DEPRESSION
     Route: 048
  16. SEROQUEL XR [Suspect]
     Indication: TACHYPHRENIA
     Route: 048
  17. SEROQUEL XR [Suspect]
     Indication: ANXIETY
     Route: 048
  18. SEROQUEL XR [Suspect]
     Indication: BIPOLAR DISORDER
     Route: 048
  19. SEROQUEL XR [Suspect]
     Indication: SLEEP DISORDER
     Route: 048
  20. SEROQUEL XR [Suspect]
     Indication: AFFECTIVE DISORDER
     Route: 048
  21. SEROQUEL XR [Suspect]
     Indication: MAJOR DEPRESSION
     Route: 048
  22. SEROQUEL XR [Suspect]
     Indication: DEPRESSION
     Route: 048
  23. SEROQUEL XR [Suspect]
     Indication: TACHYPHRENIA
     Route: 048
  24. SEROQUEL XR [Suspect]
     Indication: ANXIETY
     Route: 048
  25. SEROQUEL XR [Suspect]
     Indication: BIPOLAR DISORDER
     Route: 048
  26. SEROQUEL XR [Suspect]
     Indication: SLEEP DISORDER
     Route: 048
  27. SEROQUEL XR [Suspect]
     Indication: AFFECTIVE DISORDER
     Route: 048
  28. SEROQUEL XR [Suspect]
     Indication: MAJOR DEPRESSION
     Route: 048
  29. SEROQUEL XR [Suspect]
     Indication: DEPRESSION
     Route: 048
     Dates: start: 2008, end: 201208
  30. SEROQUEL XR [Suspect]
     Indication: TACHYPHRENIA
     Route: 048
     Dates: start: 2008, end: 201208
  31. SEROQUEL XR [Suspect]
     Indication: ANXIETY
     Route: 048
     Dates: start: 2008, end: 201208
  32. SEROQUEL XR [Suspect]
     Indication: BIPOLAR DISORDER
     Route: 048
     Dates: start: 2008, end: 201208
  33. SEROQUEL XR [Suspect]
     Indication: SLEEP DISORDER
     Route: 048
     Dates: start: 2008, end: 201208
  34. SEROQUEL XR [Suspect]
     Indication: AFFECTIVE DISORDER
     Route: 048
     Dates: start: 2008, end: 201208
  35. SEROQUEL XR [Suspect]
     Indication: MAJOR DEPRESSION
     Route: 048
     Dates: start: 2008, end: 201208
  36. LEXAPRO [Concomitant]
  37. LYRICA [Concomitant]
     Indication: PAIN
  38. LYRICA [Concomitant]
     Indication: BURNING FEET SYNDROME
  39. AMBIEN [Concomitant]
  40. HYDROXYZINE [Concomitant]
     Indication: ANXIETY
  41. AMITRIPTYLINEV HCL [Concomitant]
     Indication: ANXIETY
  42. ZOLPIDEM TARTRATE [Concomitant]
     Indication: SLEEP DISORDER
     Dosage: At night
  43. MIRTAZAPINE [Concomitant]
     Indication: DEPRESSION
  44. WELBUTRIN [Concomitant]
     Indication: DEPRESSION
  45. OTHER MEDICATIONS [Concomitant]

REACTIONS (19)
  - Suicidal ideation [Unknown]
  - Headache [Not Recovered/Not Resolved]
  - Vision blurred [Not Recovered/Not Resolved]
  - Insomnia [Unknown]
  - Night sweats [Unknown]
  - Malaise [Not Recovered/Not Resolved]
  - Memory impairment [Unknown]
  - Activities of daily living impaired [Unknown]
  - Visual acuity reduced [Unknown]
  - Pain in extremity [Unknown]
  - Burning sensation [Unknown]
  - Hallucination [Unknown]
  - Disturbance in attention [Not Recovered/Not Resolved]
  - Adverse event [Unknown]
  - Irritability [Unknown]
  - Drug withdrawal syndrome [Unknown]
  - Blood cholesterol increased [Unknown]
  - Drug dose omission [Not Recovered/Not Resolved]
  - Off label use [Unknown]
